FAERS Safety Report 5811227-6 (Version None)
Quarter: 2008Q3

REPORT INFORMATION
  Report Type: 
  Country: None (occurrence: None)
  Receive Date: 20080716
  Receipt Date: 20080714
  Transmission Date: 20090109
  Serious: Yes (Other)
  Sender: FDA-Public Use
  Company Number: JP-BRISTOL-MYERS SQUIBB COMPANY-14262976

PATIENT
  Age: 58 Year
  Sex: Male

DRUGS (11)
  1. PARAPLATIN [Suspect]
     Indication: LUNG NEOPLASM MALIGNANT
     Dosage: PARAPLATIN 360MG WITH SALINE 250ML.  INITIATED ON 12JUN08
     Route: 041
     Dates: start: 20080710, end: 20080710
  2. BUFFERIN [Concomitant]
     Route: 048
  3. SELBEX [Concomitant]
     Route: 048
  4. NOVOLIN 50R [Concomitant]
     Route: 042
  5. ALINAMIN-F [Concomitant]
     Route: 048
  6. PL [Concomitant]
     Route: 048
  7. PYDOXAL [Concomitant]
     Route: 048
  8. LAC-B [Concomitant]
     Route: 048
  9. KYTRIL [Concomitant]
     Route: 042
  10. DECADRON [Concomitant]
     Route: 042
  11. GEMZAR [Concomitant]
     Route: 042

REACTIONS (1)
  - ANAPHYLACTIC SHOCK [None]
